FAERS Safety Report 21280129 (Version 2)
Quarter: 2022Q3

REPORT INFORMATION
  Report Type: Spontaneous
  Country: US (occurrence: US)
  Receive Date: 20220901
  Receipt Date: 20220908
  Transmission Date: 20221026
  Serious: Yes (Other)
  Sender: FDA-Public Use
  Company Number: US-PFIZER INC-PV202200048189

PATIENT
  Age: 74 Year
  Sex: Male
  Weight: 89.81 kg

DRUGS (10)
  1. XELJANZ [Suspect]
     Active Substance: TOFACITINIB CITRATE
     Indication: Colitis
     Dosage: 5 MG, 1X/DAY (ONCE A DAY AT NIGHT)
     Dates: start: 2022
  2. MESALAMINE [Concomitant]
     Active Substance: MESALAMINE
     Indication: Colitis
     Dosage: UNK
  3. LANTUS [Concomitant]
     Active Substance: INSULIN GLARGINE
     Indication: Diabetes mellitus
     Dosage: 42 IU (42 UNITS)
  4. METFORMIN [Concomitant]
     Active Substance: METFORMIN HYDROCHLORIDE
     Indication: Diabetes mellitus
     Dosage: 1500 MG, DAILY (1000 MG IN THE MORNING AND 500 IN THE EVENING)
  5. ATORVASTATIN [Concomitant]
     Active Substance: ATORVASTATIN
     Indication: Cardiac disorder
     Dosage: UNK
  6. LISINOPRIL [Concomitant]
     Active Substance: LISINOPRIL
     Indication: Cardiac disorder
     Dosage: 5 MG
  7. PANTOPRAZOLE [Concomitant]
     Active Substance: PANTOPRAZOLE
     Dosage: 40 MG
  8. BENZONATATE [Concomitant]
     Active Substance: BENZONATATE
     Dosage: UNK
  9. PREDNISONE [Concomitant]
     Active Substance: PREDNISONE
     Indication: Dyspnoea
     Dosage: UNK
  10. TRELEGY ELLIPTA [Concomitant]
     Active Substance: FLUTICASONE FUROATE\UMECLIDINIUM BROMIDE\VILANTEROL TRIFENATATE
     Indication: Dyspnoea
     Dosage: UNK

REACTIONS (8)
  - Ileostomy [Not Recovered/Not Resolved]
  - Large intestine polyp [Not Recovered/Not Resolved]
  - Cough [Not Recovered/Not Resolved]
  - Dyspnoea [Not Recovered/Not Resolved]
  - Condition aggravated [Not Recovered/Not Resolved]
  - Gait inability [Unknown]
  - Off label use [Unknown]
  - Off label use [Unknown]
